FAERS Safety Report 6897242-2 (Version None)
Quarter: 2010Q3

REPORT INFORMATION
  Report Type: 
  Country: None (occurrence: None)
  Receive Date: 20100802
  Receipt Date: 20070502
  Transmission Date: 20110219
  Serious: No
  Sender: FDA-Public Use
  Company Number: US-PFIZER INC-2007018572

PATIENT
  Age: 70 Year
  Sex: Female
  Weight: 77.1 kg

DRUGS (12)
  1. LYRICA [Suspect]
     Indication: NEURALGIA
     Route: 048
     Dates: start: 20070129
  2. BENICAR [Suspect]
     Route: 048
  3. ACCUPRIL [Concomitant]
  4. TOPROL-XL [Concomitant]
  5. TYLENOL [Concomitant]
  6. VYTORIN [Concomitant]
  7. VALIUM [Concomitant]
  8. FOSAMAX [Concomitant]
  9. ACETYLSALICYLIC ACID SRT [Concomitant]
  10. CALCIUM [Concomitant]
  11. MULTI-VITAMINS [Concomitant]
  12. FISH OIL [Concomitant]

REACTIONS (3)
  - ALOPECIA [None]
  - NAIL DISORDER [None]
  - VISION BLURRED [None]
